FAERS Safety Report 21564615 (Version 3)
Quarter: 2022Q4

REPORT INFORMATION
  Report Type: Other
  Country: US (occurrence: None)
  Receive Date: 20221108
  Receipt Date: 20221111
  Transmission Date: 20230112
  Serious: Yes (Death)
  Sender: FDA-Public Use
  Company Number: US-ROCHE-3213926

PATIENT
  Age: 23 Year
  Sex: Male

DRUGS (2)
  1. RITUXAN [Suspect]
     Active Substance: RITUXIMAB
     Indication: Neuromyelitis optica spectrum disorder
     Dosage: INFUSE 1000 MG INTRAVENOUSLY ON DAY 1 AND 15, REPEAT IN 6 MONTHS
     Route: 042
     Dates: start: 202210, end: 202210
  2. RITUXAN [Suspect]
     Active Substance: RITUXIMAB
     Indication: Demyelination

REACTIONS (2)
  - Death [Fatal]
  - Off label use [Unknown]
